FAERS Safety Report 11871450 (Version 1)
Quarter: 2015Q4

REPORT INFORMATION
  Report Type: Report from Study
  Country: MX (occurrence: MX)
  Receive Date: 20151228
  Receipt Date: 20151228
  Transmission Date: 20160305
  Serious: Yes (Hospitalization)
  Sender: FDA-Public Use
  Company Number: PHHY2014MX095305

PATIENT
  Age: 77 Year
  Sex: Female

DRUGS (5)
  1. CARBIDOPA. [Concomitant]
     Active Substance: CARBIDOPA
     Indication: PARKINSON^S DISEASE
     Dosage: 2 DF, QD
     Route: 065
  2. FELODIPINE. [Concomitant]
     Active Substance: FELODIPINE
     Indication: CARDIAC DISORDER
     Dosage: 1 DF, UNK
     Route: 065
  3. LEVOTHYROXINE. [Concomitant]
     Active Substance: LEVOTHYROXINE
     Indication: THYROID DISORDER
     Dosage: 0.25 DF, QD
     Route: 065
  4. STALEVO [Suspect]
     Active Substance: CARBIDOPA\ENTACAPONE\LEVODOPA
     Indication: PARKINSON^S DISEASE
     Dosage: 3 (2000/50/200 MG), UNK
     Route: 048
  5. LEVODOPA [Concomitant]
     Active Substance: LEVODOPA
     Indication: PARKINSON^S DISEASE
     Dosage: 2 DF, QD
     Route: 065
     Dates: start: 2010

REACTIONS (5)
  - Constipation [Unknown]
  - Gait disturbance [Unknown]
  - Malaise [Unknown]
  - Cardiac arrest [Recovered/Resolved]
  - Urinary tract disorder [Recovered/Resolved]

NARRATIVE: CASE EVENT DATE: 201404
